FAERS Safety Report 11005715 (Version 1)
Quarter: 2015Q2

REPORT INFORMATION
  Report Type: Spontaneous
  Country: US (occurrence: US)
  Receive Date: 20150409
  Receipt Date: 20150409
  Transmission Date: 20150821
  Serious: Yes (Other)
  Sender: FDA-Public Use
  Company Number: US-ALLERGAN-1406435US

PATIENT
  Age: 77 Year
  Sex: Male

DRUGS (1)
  1. LUMIGAN [Suspect]
     Active Substance: BIMATOPROST
     Indication: GLAUCOMA
     Dosage: 1 GTT, OU, QHS
     Route: 047
     Dates: end: 2013

REACTIONS (2)
  - Visual acuity reduced [Recovering/Resolving]
  - Macular oedema [Recovered/Resolved]

NARRATIVE: CASE EVENT DATE: 2013
